FAERS Safety Report 8013464-1 (Version None)
Quarter: 2011Q4

REPORT INFORMATION
  Report Type: 
  Country: None (occurrence: None)
  Receive Date: 20111229
  Receipt Date: 20111223
  Transmission Date: 20120403
  Serious: Yes (Death)
  Sender: FDA-Public Use
  Company Number: -CUBIST-2011S1000866

PATIENT
  Age: 47 Year
  Sex: Male
  Weight: 64.2 kg

DRUGS (2)
  1. CUBICIN [Suspect]
     Indication: STAPHYLOCOCCAL INFECTION
     Route: 065
     Dates: start: 20080321, end: 20080410
  2. CUBICIN [Suspect]
     Route: 065
     Dates: start: 20080321, end: 20080410

REACTIONS (1)
  - DEATH [None]
